FAERS Safety Report 19017162 (Version 1)
Quarter: 2021Q1

REPORT INFORMATION
  Report Type: Spontaneous
  Country: US (occurrence: US)
  Receive Date: 20210316
  Receipt Date: 20210316
  Transmission Date: 20210420
  Serious: No
  Sender: FDA-Public Use
  Company Number: US-GALDERMA-US2020047197

PATIENT
  Sex: Female

DRUGS (2)
  1. DIFFERIN [Suspect]
     Active Substance: ADAPALENE
     Indication: ACNE
     Route: 061
  2. DIFFERIN DAILY DEEP CLEANSER WITH BPO [Suspect]
     Active Substance: BENZOYL PEROXIDE
     Indication: SEBORRHOEA
     Route: 061

REACTIONS (5)
  - Erythema [Unknown]
  - Rash pruritic [Unknown]
  - Skin irritation [Unknown]
  - Skin burning sensation [Unknown]
  - Dry skin [Unknown]
